FAERS Safety Report 4674297-7 (Version None)
Quarter: 2005Q2

REPORT INFORMATION
  Report Type: 
  Country: None (occurrence: None)
  Receive Date: 20050526
  Receipt Date: 20050511
  Transmission Date: 20051028
  Serious: Yes (Other)
  Sender: FDA-Public Use
  Company Number: HU-BOEHRINGER INGELHEIM PHARMACEUTICALS, INC.-2005-DE-01917GL

PATIENT
  Sex: Male

DRUGS (1)
  1. TELMISARTAN [Suspect]
     Indication: HYPERTENSION
     Route: 065
     Dates: start: 20050330, end: 20050403

REACTIONS (3)
  - INTESTINAL SPASM [None]
  - MELAENA [None]
  - NAUSEA [None]
